FAERS Safety Report 5252546-4 (Version None)
Quarter: 2007Q1

REPORT INFORMATION
  Report Type: 
  Country: None (occurrence: None)
  Receive Date: 20070301
  Receipt Date: 20070219
  Transmission Date: 20070707
  Serious: Yes (Disabling)
  Sender: FDA-Public Use
  Company Number: GB-AVENTIS-200710857EU

PATIENT
  Age: 83 Year
  Sex: Female

DRUGS (7)
  1. FUROSEMIDE [Suspect]
     Indication: HYPERTENSION
     Route: 048
     Dates: start: 19820901
  2. AMLODIPINE [Concomitant]
     Route: 048
     Dates: start: 19990101
  3. ASPIRIN [Concomitant]
     Route: 048
     Dates: start: 19820101
  4. BEZAFIBRATE [Concomitant]
     Route: 048
     Dates: start: 20050701
  5. CALCICHEW                          /00108001/ [Concomitant]
     Indication: BONE DISORDER
     Route: 048
     Dates: start: 20040101
  6. ISOSORBIDE MONONITRATE [Concomitant]
     Route: 048
     Dates: start: 19990101
  7. SPIRONOLACTONE [Concomitant]
     Route: 048
     Dates: start: 20060501

REACTIONS (5)
  - ABDOMINAL DISTENSION [None]
  - DIZZINESS [None]
  - MALAISE [None]
  - NAUSEA [None]
  - RENAL INJURY [None]
